FAERS Safety Report 11336736 (Version 1)
Quarter: 2015Q3

REPORT INFORMATION
  Report Type: Spontaneous
  Country: US (occurrence: US)
  Receive Date: 20150804
  Receipt Date: 20150804
  Transmission Date: 20151125
  Serious: No
  Sender: FDA-Public Use
  Company Number: US-SHIRE-US201509676

PATIENT
  Age: 70 Year
  Sex: Female

DRUGS (2)
  1. VYVANSE [Suspect]
     Active Substance: LISDEXAMFETAMINE DIMESYLATE
     Dosage: 70 MG, UNKNOWN
     Route: 048
  2. VYVANSE [Suspect]
     Active Substance: LISDEXAMFETAMINE DIMESYLATE
     Indication: ATTENTION DEFICIT/HYPERACTIVITY DISORDER
     Dosage: UNK UNK, 2X/DAY:BID (SPLITS 70 MG AND TAKES 1/2 MORNING, 1/2 DURING DAY)
     Route: 048

REACTIONS (3)
  - Inappropriate schedule of drug administration [Not Recovered/Not Resolved]
  - Incorrect dose administered [Not Recovered/Not Resolved]
  - No adverse event [Not Recovered/Not Resolved]
